FAERS Safety Report 16285209 (Version 1)
Quarter: 2019Q2

REPORT INFORMATION
  Report Type: Spontaneous
  Country: US (occurrence: US)
  Receive Date: 20190508
  Receipt Date: 20190508
  Transmission Date: 20190711
  Serious: No
  Sender: FDA-Public Use
  Company Number: US-TEVA-2019-US-1048590

PATIENT
  Sex: Male

DRUGS (1)
  1. CHILDRENS IBUPROFEN [Suspect]
     Active Substance: IBUPROFEN
     Dosage: 100 MG / 5 ML

REACTIONS (4)
  - Drug ineffective [Unknown]
  - Expired product administered [Unknown]
  - Product dispensing error [Unknown]
  - Product outer packaging issue [Unknown]
